FAERS Safety Report 9046220 (Version 2)
Quarter: 2013Q2

REPORT INFORMATION
  Report Type: Spontaneous
  Country: BR (occurrence: BR)
  Receive Date: 20130201
  Receipt Date: 20130410
  Transmission Date: 20140414
  Serious: Yes (Other)
  Sender: FDA-Public Use
  Company Number: PHHY2013BR008597

PATIENT
  Sex: Male

DRUGS (5)
  1. EXELON [Suspect]
     Indication: DEMENTIA
     Dosage: 1 DF, QD
     Route: 048
  2. TICLID [Concomitant]
     Indication: CEREBRAL HYPOPERFUSION
     Dosage: 1 DF, (DAILY)
     Route: 048
  3. AMLODIPINE [Concomitant]
     Indication: BLOOD PRESSURE ABNORMAL
     Dosage: 1 DF, BID
     Route: 048
     Dates: start: 201211
  4. PONDERA [Concomitant]
     Dosage: UNK UKN, UNK
  5. AMITRIPTILINA [Concomitant]
     Dosage: UNK UKN, UNK

REACTIONS (1)
  - Cerebrovascular accident [Recovering/Resolving]
